FAERS Safety Report 16601630 (Version 1)
Quarter: 2019Q3

REPORT INFORMATION
  Report Type: Report from Study
  Country: US (occurrence: US)
  Receive Date: 20190719
  Receipt Date: 20190719
  Transmission Date: 20191004
  Serious: No
  Sender: FDA-Public Use
  Company Number: US-AGIOS-1905US01146

PATIENT

DRUGS (3)
  1. TIBSOVO [Suspect]
     Active Substance: IVOSIDENIB
     Indication: ISOCITRATE DEHYDROGENASE GENE MUTATION
  2. TIBSOVO [Suspect]
     Active Substance: IVOSIDENIB
     Indication: BONE CANCER
     Dosage: 250 MILLIGRAM, 2  TABLETS (500 MILLIGRAM), QD
     Route: 048
     Dates: start: 20190418
  3. TIBSOVO [Suspect]
     Active Substance: IVOSIDENIB
     Indication: CHONDROSARCOMA

REACTIONS (3)
  - Diarrhoea [Not Recovered/Not Resolved]
  - Fatigue [Not Recovered/Not Resolved]
  - Off label use [Unknown]

NARRATIVE: CASE EVENT DATE: 20190418
